FAERS Safety Report 23260768 (Version 1)
Quarter: 2023Q4

REPORT INFORMATION
  Report Type: Other
  Country: ES (occurrence: ES)
  Receive Date: 20231205
  Receipt Date: 20231205
  Transmission Date: 20240110
  Serious: Yes (Other)
  Sender: FDA-Public Use
  Company Number: None

PATIENT

DRUGS (3)
  1. TOPIRAMATE [Suspect]
     Active Substance: TOPIRAMATE
     Indication: Borderline personality disorder
     Dosage: 50 MILLIGRAM, QD
     Route: 048
     Dates: start: 20231026, end: 20231026
  2. ALPRAZOLAM [Suspect]
     Active Substance: ALPRAZOLAM
     Indication: Borderline personality disorder
     Dosage: 0.5 MILLIGRAM, QD
     Route: 048
     Dates: start: 20231026, end: 20231026
  3. HALOPERIDOL [Suspect]
     Active Substance: HALOPERIDOL
     Indication: Aggression
     Dosage: 1 MILLIGRAM, TOTAL
     Route: 030
     Dates: start: 20231025, end: 20231025

REACTIONS (1)
  - Dystonia [Recovered/Resolved]

NARRATIVE: CASE EVENT DATE: 20231026
